FAERS Safety Report 6424950-X (Version None)
Quarter: 2009Q4

REPORT INFORMATION
  Report Type: 
  Country: None (occurrence: None)
  Receive Date: 20091103
  Receipt Date: 20091027
  Transmission Date: 20100525
  Serious: Yes (Hospitalization, Other)
  Sender: FDA-Public Use
  Company Number: US-ELI_LILLY_AND_COMPANY-US200910007091

PATIENT
  Sex: Female

DRUGS (2)
  1. HUMALOG [Suspect]
     Indication: TYPE 2 DIABETES MELLITUS
  2. LANTUS [Concomitant]
     Route: 058

REACTIONS (3)
  - BLINDNESS [None]
  - DRUG DOSE OMISSION [None]
  - HYPERGLYCAEMIA [None]
